FAERS Safety Report 24244824 (Version 2)
Quarter: 2024Q3

REPORT INFORMATION
  Report Type: Spontaneous
  Country: NL (occurrence: NL)
  Receive Date: 20240823
  Receipt Date: 20240925
  Transmission Date: 20241017
  Serious: No
  Sender: PFIZER
  Company Number: NL-PFIZER INC-202400235665

PATIENT
  Sex: Female

DRUGS (1)
  1. DEPO-PROVERA [Suspect]
     Active Substance: MEDROXYPROGESTERONE ACETATE
     Dosage: 150 MG

REACTIONS (1)
  - Device deposit issue [Unknown]
